FAERS Safety Report 16805779 (Version 1)
Quarter: 2019Q3

REPORT INFORMATION
  Report Type: Spontaneous
  Country: US (occurrence: US)
  Receive Date: 20190724
  Receipt Date: 20190724
  Transmission Date: 20191005
  Serious: Yes (Hospitalization, Other)
  Sender: FDA-Public Use
  Company Number: None

PATIENT
  Age: 73 Year
  Sex: Female
  Weight: 140.61 kg

DRUGS (1)
  1. WARFARIN [Suspect]
     Active Substance: WARFARIN
     Indication: THROMBOSIS
     Dates: start: 201905, end: 20190603

REACTIONS (9)
  - Pruritus [None]
  - Rash [None]
  - Weight bearing difficulty [None]
  - Pain in extremity [None]
  - Rash erythematous [None]
  - Headache [None]
  - Drug ineffective [None]
  - Gait disturbance [None]
  - Swelling [None]

NARRATIVE: CASE EVENT DATE: 20190510
